FAERS Safety Report 19884335 (Version 1)
Quarter: 2021Q3

REPORT INFORMATION
  Report Type: Spontaneous
  Country: US (occurrence: US)
  Receive Date: 20210926
  Receipt Date: 20210926
  Transmission Date: 20211014
  Serious: Yes (Other)
  Sender: FDA-Public Use
  Company Number: None

PATIENT
  Age: 39 Year
  Sex: Female
  Weight: 67.5 kg

DRUGS (1)
  1. TIOCONAZOLE OINTMENT [Suspect]
     Active Substance: TIOCONAZOLE
     Indication: VULVOVAGINAL CANDIDIASIS
     Dosage: ?          OTHER FREQUENCY:ONE TIME APPLICATI;?
     Route: 067

REACTIONS (8)
  - Vulvovaginal pain [None]
  - Crying [None]
  - Hypersensitivity [None]
  - Vulvovaginal burning sensation [None]
  - Lymphadenopathy [None]
  - Mucosal excoriation [None]
  - Application site pain [None]
  - Vulvovaginal swelling [None]

NARRATIVE: CASE EVENT DATE: 20210926
